FAERS Safety Report 20705891 (Version 1)
Quarter: 2022Q2

REPORT INFORMATION
  Report Type: Spontaneous
  Country: US (occurrence: US)
  Receive Date: 20220413
  Receipt Date: 20220413
  Transmission Date: 20220721
  Serious: No
  Sender: FDA-Public Use
  Company Number: USA--2022-US-000020

PATIENT
  Age: 6 Week
  Sex: Male

DRUGS (2)
  1. TROPICAMIDE [Suspect]
     Active Substance: TROPICAMIDE
     Dosage: 1GTT OU X1, 5 MIN LATER 1 GTT OU X1
     Dates: start: 20211230, end: 20211230
  2. Phenylephrine Ophthalmic Solution [Concomitant]

REACTIONS (1)
  - Drug ineffective [Recovered/Resolved]

NARRATIVE: CASE EVENT DATE: 20211230
